FAERS Safety Report 4287641-X (Version None)
Quarter: 2004Q1

REPORT INFORMATION
  Report Type: 
  Country: None (occurrence: None)
  Receive Date: 20040209
  Receipt Date: 20030814
  Transmission Date: 20041129
  Serious: No
  Sender: FDA-Public Use
  Company Number: US-GLAXOSMITHKLINE-A0421217A

PATIENT
  Sex: Female

DRUGS (2)
  1. PAXIL [Suspect]
     Dosage: 50MG PER DAY
     Route: 048
     Dates: end: 20030806
  2. PROZAC [Concomitant]
     Dosage: 10MG PER DAY

REACTIONS (5)
  - CHILLS [None]
  - CRYING [None]
  - DRUG WITHDRAWAL SYNDROME [None]
  - FEELING ABNORMAL [None]
  - INSOMNIA [None]
